FAERS Safety Report 9573141 (Version 1)
Quarter: 2013Q4

REPORT INFORMATION
  Report Type: Spontaneous
  Country: US (occurrence: US)
  Receive Date: 20131001
  Receipt Date: 20131001
  Transmission Date: 20140711
  Serious: Yes (Other)
  Sender: FDA-Public Use
  Company Number: US-NAPPMUNDI-USA-2012-0082162

PATIENT
  Sex: Female

DRUGS (2)
  1. BUTRANS [Suspect]
     Indication: DRUG ABUSE
  2. OTHER OPIOIDS [Suspect]
     Indication: DRUG ABUSE

REACTIONS (1)
  - Drug abuse [Unknown]
